FAERS Safety Report 25673410 (Version 3)
Quarter: 2025Q3

REPORT INFORMATION
  Report Type: Spontaneous
  Country: EU (occurrence: EU)
  Receive Date: 20250813
  Receipt Date: 20250904
  Transmission Date: 20251020
  Serious: No
  Sender: UCB
  Company Number: EU-UCBSA-2025048740

PATIENT
  Sex: Female

DRUGS (1)
  1. NEUPRO [Suspect]
     Active Substance: ROTIGOTINE
     Indication: Product used for unknown indication
     Dosage: 3 MILLIGRAM PER 24 HOUR
     Route: 062

REACTIONS (1)
  - Product adhesion issue [Unknown]
